FAERS Safety Report 10957616 (Version 6)
Quarter: 2017Q2

REPORT INFORMATION
  Report Type: Spontaneous
  Country: US (occurrence: US)
  Receive Date: 20150326
  Receipt Date: 20170426
  Transmission Date: 20170829
  Serious: No
  Sender: FDA-Public Use
  Company Number: US-PFIZER INC-2015101396

PATIENT
  Age: 61 Year
  Sex: Female
  Weight: 65 kg

DRUGS (10)
  1. CENTRUM [Concomitant]
     Active Substance: VITAMINS
     Dosage: UNK
  2. LISINOPRIL. [Concomitant]
     Active Substance: LISINOPRIL
     Dosage: UNK
  3. ATORVASTATIN CALCIUM. [Concomitant]
     Active Substance: ATORVASTATIN CALCIUM
     Dosage: UNK
  4. SUTENT [Suspect]
     Active Substance: SUNITINIB MALATE
     Indication: RENAL CANCER METASTATIC
     Dosage: 37.5 MG, UNK
     Dates: start: 20110301
  5. SUTENT [Suspect]
     Active Substance: SUNITINIB MALATE
     Indication: PSORIASIS
     Dosage: 12.5 MG, CYCLIC (DAILY FOR 6 WEEKS ON AND 2 WEEKS OFF)
     Route: 048
  6. ESTRADIOL. [Concomitant]
     Active Substance: ESTRADIOL
     Dosage: UNK
     Dates: start: 2000
  7. FISH OIL [Concomitant]
     Active Substance: FISH OIL
     Dosage: UNK
     Dates: start: 2010
  8. DIMENHYDRINATE. [Concomitant]
     Active Substance: DIMENHYDRINATE
     Dosage: UNK
  9. SUTENT [Suspect]
     Active Substance: SUNITINIB MALATE
     Dosage: 12.5 MG, DAILY (NO BREAK IN THERAPY)
  10. ATORVASTATIN [Concomitant]
     Active Substance: ATORVASTATIN
     Dosage: UNK
     Dates: start: 2000

REACTIONS (13)
  - Burning sensation [Recovering/Resolving]
  - Sinusitis [Recovering/Resolving]
  - Product use issue [Unknown]
  - Oral discomfort [Recovering/Resolving]
  - Decreased interest [Unknown]
  - Asthenia [Unknown]
  - Dysgeusia [Unknown]
  - Dehydration [Unknown]
  - Neoplasm progression [Unknown]
  - Nausea [Unknown]
  - Diarrhoea [Unknown]
  - Vomiting [Unknown]
  - Fatigue [Unknown]
